FAERS Safety Report 24736746 (Version 1)
Quarter: 2024Q4

REPORT INFORMATION
  Report Type: Spontaneous
  Country: JP (occurrence: JP)
  Receive Date: 20241216
  Receipt Date: 20241216
  Transmission Date: 20250115
  Serious: Yes (Death, Life-Threatening, Other)
  Sender: TAKEDA
  Company Number: JP-TAKEDA-2024TJP017819

PATIENT
  Age: 9 Decade

DRUGS (1)
  1. NINLARO [Suspect]
     Active Substance: IXAZOMIB CITRATE
     Indication: Plasma cell myeloma refractory
     Dosage: 3 MILLIGRAM, 1/WEEK
     Dates: start: 20240702

REACTIONS (2)
  - Plasma cell myeloma refractory [Fatal]
  - Product use issue [Unknown]

NARRATIVE: CASE EVENT DATE: 20240702
